FAERS Safety Report 10244511 (Version 1)
Quarter: 2014Q1

REPORT INFORMATION
  Report Type: Spontaneous
  Country: US (occurrence: None)
  Receive Date: 20140306
  Receipt Date: 20140306
  Transmission Date: 20141002
  Serious: Yes (Other)
  Sender: FDA-Public Use
  Company Number: 163-21880-13023536

PATIENT
  Age: 74 Year
  Sex: Female
  Weight: 60.8 kg

DRUGS (7)
  1. REVLIMID (LENALIDOMIDE) (CAPSULES) [Suspect]
     Indication: PLASMA CELL MYELOMA
     Route: 048
     Dates: start: 20130103
  2. HYDROCODONE-ACETAMINOPHEN (VICODIN) (UNKNOWN) [Concomitant]
  3. VITAMIN D (ERGOCALCIFEROL) (TABLETS [Concomitant]
  4. MULTIVITAMINS (CAPSULES) [Concomitant]
  5. AMLODIPINE BESYLATE (TABLETS) [Concomitant]
  6. ACYCLOVIR (ACICLOVIR) (TABLETS) [Concomitant]
  7. METOPROLOL SUCCINATE (TABLETS) [Concomitant]

REACTIONS (1)
  - Thrombosis [None]
